FAERS Safety Report 20954979 (Version 4)
Quarter: 2024Q2

REPORT INFORMATION
  Report Type: Spontaneous
  Country: US (occurrence: US)
  Receive Date: 20220614
  Receipt Date: 20240424
  Transmission Date: 20240716
  Serious: No
  Sender: FDA-Public Use
  Company Number: US-PFIZER INC-2020293422

PATIENT
  Age: 9 Month
  Sex: Female

DRUGS (1)
  1. GENOTROPIN [Suspect]
     Active Substance: SOMATROPIN
     Dosage: 0.2 MG, DAILY (7 DAYS A WEEK)
     Dates: start: 20200306

REACTIONS (3)
  - Product dose omission issue [Unknown]
  - Device breakage [Unknown]
  - Device use error [Unknown]

NARRATIVE: CASE EVENT DATE: 20200701
